FAERS Safety Report 6388218-2 (Version None)
Quarter: 2009Q4

REPORT INFORMATION
  Report Type: 
  Country: None (occurrence: None)
  Receive Date: 20091005
  Receipt Date: 20090925
  Transmission Date: 20100525
  Serious: Yes (Other)
  Sender: FDA-Public Use
  Company Number: FR-BAYER-200933868GPV

PATIENT
  Sex: Male

DRUGS (1)
  1. BETAFERON [Suspect]
     Indication: DRUG USE FOR UNKNOWN INDICATION
     Dosage: TREATED FOR 6 TO 7 YEARS

REACTIONS (2)
  - IMMUNOGLOBULINS ABNORMAL [None]
  - MULTIPLE MYELOMA [None]
